FAERS Safety Report 8445732-3 (Version None)
Quarter: 2012Q2

REPORT INFORMATION
  Report Type: 
  Country: None (occurrence: None)
  Receive Date: 20120618
  Receipt Date: 20120612
  Transmission Date: 20120825
  Serious: Yes (Life-Threatening, Hospitalization)
  Sender: FDA-Public Use
  Company Number: JP-GLAXOSMITHKLINE-B0759284A

PATIENT
  Sex: Female
  Weight: 45 kg

DRUGS (6)
  1. DEPAS [Concomitant]
     Indication: BIPOLAR DISORDER
     Dosage: .5MG PER DAY
     Route: 048
     Dates: start: 20110901, end: 20111010
  2. RIMATIL [Concomitant]
     Indication: RHEUMATOID ARTHRITIS
     Route: 048
     Dates: end: 20111010
  3. LAMICTAL [Suspect]
     Indication: BIPOLAR DISORDER
     Dosage: 25MG PER DAY
     Route: 048
     Dates: start: 20110901, end: 20111010
  4. SEROQUEL [Concomitant]
     Indication: BIPOLAR DISORDER
     Dosage: 25MG PER DAY
     Route: 048
     Dates: start: 20110901, end: 20111010
  5. ZYPREXA [Concomitant]
     Indication: BIPOLAR DISORDER
     Dosage: 5MG PER DAY
     Route: 048
     Dates: start: 20110901, end: 20111010
  6. RHEUMATREX [Concomitant]
     Indication: RHEUMATOID ARTHRITIS
     Route: 048
     Dates: end: 20111010

REACTIONS (30)
  - ASPARTATE AMINOTRANSFERASE INCREASED [None]
  - ALANINE AMINOTRANSFERASE INCREASED [None]
  - HEPATIC ENZYME INCREASED [None]
  - RASH [None]
  - MUSCULAR WEAKNESS [None]
  - CONJUNCTIVAL HYPERAEMIA [None]
  - ERYTHEMA [None]
  - LIVER DISORDER [None]
  - GAMMA-GLUTAMYLTRANSFERASE INCREASED [None]
  - NEUTROPHIL COUNT INCREASED [None]
  - HEPATIC FUNCTION ABNORMAL [None]
  - LYMPHADENOPATHY [None]
  - LYMPHOCYTIC INFILTRATION [None]
  - PYREXIA [None]
  - BLOOD CREATINE PHOSPHOKINASE ABNORMAL [None]
  - WHITE BLOOD CELL COUNT INCREASED [None]
  - ERYTHEMA OF EYELID [None]
  - C-REACTIVE PROTEIN INCREASED [None]
  - BLOOD BILIRUBIN INCREASED [None]
  - BLOOD COUNT ABNORMAL [None]
  - HEPATOMEGALY [None]
  - GENERALISED ERYTHEMA [None]
  - LYMPHOCYTE MORPHOLOGY ABNORMAL [None]
  - BLOOD LACTATE DEHYDROGENASE INCREASED [None]
  - BLOOD ALKALINE PHOSPHATASE INCREASED [None]
  - RASH GENERALISED [None]
  - MALAISE [None]
  - LYMPHOCYTE COUNT DECREASED [None]
  - DRUG RASH WITH EOSINOPHILIA AND SYSTEMIC SYMPTOMS [None]
  - HUMAN HERPES VIRUS 6 SEROLOGY POSITIVE [None]
